FAERS Safety Report 12980723 (Version 1)
Quarter: 2016Q4

REPORT INFORMATION
  Report Type: Spontaneous
  Country: CA (occurrence: CA)
  Receive Date: 20161128
  Receipt Date: 20161128
  Transmission Date: 20170207
  Serious: Yes (Life-Threatening, Other)
  Sender: FDA-Public Use
  Company Number: CA-GILEAD-2016-0231378

PATIENT
  Age: 62 Year
  Sex: Male
  Weight: 65.31 kg

DRUGS (8)
  1. RABEPRAZOLE [Concomitant]
     Active Substance: RABEPRAZOLE
  2. SOVALDI [Suspect]
     Active Substance: SOFOSBUVIR
     Indication: HEPATITIS C VIRUS TEST POSITIVE
     Route: 065
  3. COLACE [Concomitant]
     Active Substance: DOCUSATE SODIUM
  4. GABAPENTIN. [Concomitant]
     Active Substance: GABAPENTIN
  5. METHADONE [Concomitant]
     Active Substance: METHADONE HYDROCHLORIDE
  6. DELATESTRYL [Concomitant]
     Active Substance: TESTOSTERONE ENANTHATE
  7. RIBAVIRIN. [Concomitant]
     Active Substance: RIBAVIRIN
  8. ADVAIR HFA [Concomitant]
     Active Substance: FLUTICASONE PROPIONATE\SALMETEROL XINAFOATE

REACTIONS (4)
  - Drug-induced liver injury [Recovered/Resolved]
  - Nausea [Recovered/Resolved]
  - Blood bilirubin increased [Recovered/Resolved]
  - Malaise [Recovered/Resolved]

NARRATIVE: CASE EVENT DATE: 20160530
